FAERS Safety Report 10375246 (Version 1)
Quarter: 2014Q1

REPORT INFORMATION
  Report Type: Spontaneous
  Country: US (occurrence: None)
  Receive Date: 20140306
  Receipt Date: 20140306
  Transmission Date: 20141002
  Serious: Yes (Hospitalization)
  Sender: FDA-Public Use
  Company Number: 163-21880-13040489

PATIENT
  Age: 84 Year
  Sex: Female

DRUGS (11)
  1. REVLIMID [Suspect]
     Indication: MYELODYSPLASTIC SYNDROME
     Route: 048
     Dates: start: 20130211
  2. COREG (CARVEDILOL) (TABLETS) [Concomitant]
  3. PROTONIX (TABLETS) [Concomitant]
  4. CIPRO (CIPROFLOXACIN) (TABLETS) [Concomitant]
  5. COLACE (DOCUSATE SODIUM) (CAPSULES) [Concomitant]
  6. DIGOXIN (DIGOXIN) (TABLETS) [Concomitant]
  7. DULCOLAX (BISACODYL) (TABLETS) [Concomitant]
  8. PROCRIT (ERYTHROPOIETIN) [Concomitant]
  9. REMERON (MIRTAZAPINE) (TABLETS) [Concomitant]
  10. SYNTHROID (LEVOTHYROXINE SODIUM) (TABLETS) [Concomitant]
  11. TYLENOL EXTRA STRENGTH (PARACETAMOL) [Concomitant]

REACTIONS (2)
  - Platelet count decreased [None]
  - Malaise [None]
